FAERS Safety Report 15428483 (Version 1)
Quarter: 2018Q3

REPORT INFORMATION
  Report Type: Spontaneous
  Country: IN (occurrence: IN)
  Receive Date: 20180926
  Receipt Date: 20180926
  Transmission Date: 20181010
  Serious: Yes (Death, Other)
  Sender: FDA-Public Use
  Company Number: IN-CIPLA LTD.-2018IN21457

PATIENT

DRUGS (1)
  1. LAMOTRIGINE. [Suspect]
     Active Substance: LAMOTRIGINE
     Indication: PRODUCT USED FOR UNKNOWN INDICATION
     Dosage: UNK
     Route: 065

REACTIONS (2)
  - Death [Fatal]
  - Stevens-Johnson syndrome [Unknown]
